FAERS Safety Report 23627275 (Version 2)
Quarter: 2024Q2

REPORT INFORMATION
  Report Type: Report from Study
  Country: US (occurrence: US)
  Receive Date: 20240313
  Receipt Date: 20240606
  Transmission Date: 20240716
  Serious: No
  Sender: FDA-Public Use
  Company Number: US-SPRINGWORKS THERAPEUTICS-SW-001350

PATIENT
  Age: 53 Year
  Sex: Female
  Weight: 66.667 kg

DRUGS (2)
  1. NIROGACESTAT [Suspect]
     Active Substance: NIROGACESTAT
     Indication: Product used for unknown indication
     Dosage: 150 MILLIGRAM, BID
     Route: 048
     Dates: start: 20240215, end: 20240426
  2. NIROGACESTAT [Suspect]
     Active Substance: NIROGACESTAT
     Dosage: UNK
     Dates: start: 20240503

REACTIONS (6)
  - Vomiting [Recovering/Resolving]
  - Vision blurred [Unknown]
  - Night sweats [Unknown]
  - Weight decreased [Unknown]
  - Nausea [Unknown]
  - Product dose omission issue [Unknown]

NARRATIVE: CASE EVENT DATE: 20240219
